FAERS Safety Report 16274496 (Version 1)
Quarter: 2019Q2

REPORT INFORMATION
  Report Type: Spontaneous
  Country: DE (occurrence: DE)
  Receive Date: 20190504
  Receipt Date: 20190504
  Transmission Date: 20190711
  Serious: Yes (Other)
  Sender: FDA-Public Use
  Company Number: DE-TEVA-2019-DE-1044293

PATIENT
  Age: 87 Year
  Sex: Female
  Weight: 82 kg

DRUGS (5)
  1. LOSARTAN. [Concomitant]
     Active Substance: LOSARTAN
     Indication: HYPERTENSION
     Route: 048
     Dates: start: 20180424
  2. MEAVERIN (MEPIVACAINE) [Suspect]
     Active Substance: MEPIVACAINE HYDROCHLORIDE
     Indication: SPINAL DISORDER
     Route: 058
     Dates: start: 20190321, end: 20190323
  3. BISOPROLOL [Concomitant]
     Active Substance: BISOPROLOL
     Indication: HYPERTENSION
     Route: 048
  4. DEXAMETHASONE. [Suspect]
     Active Substance: DEXAMETHASONE
     Indication: SPINAL DISORDER
     Dosage: DAILY DOSE: 4 MG MILLGRAM(S) EVERY TOTAL
     Route: 058
     Dates: start: 20190321, end: 20190321
  5. NOVAMINSULFON 500MG/ML TROPFEN [Suspect]
     Active Substance: METAMIZOLE
     Indication: SPINAL DISORDER
     Dosage: DAILY DOSE: 120 GTT DROP(S) EVERY DAYS
     Route: 048
     Dates: start: 20190321, end: 20190323

REACTIONS (7)
  - Faeces pale [Recovering/Resolving]
  - Liver disorder [Recovering/Resolving]
  - Asthenia [Recovering/Resolving]
  - Cholestasis [Recovering/Resolving]
  - Jaundice [Recovering/Resolving]
  - Hypotension [Recovering/Resolving]
  - Chromaturia [Recovering/Resolving]

NARRATIVE: CASE EVENT DATE: 20190323
